FAERS Safety Report 19098781 (Version 2)
Quarter: 2021Q2

REPORT INFORMATION
  Report Type: Spontaneous
  Country: AU (occurrence: AU)
  Receive Date: 20210406
  Receipt Date: 20210429
  Transmission Date: 20210717
  Serious: Yes (Life-Threatening, Hospitalization)
  Sender: FDA-Public Use
  Company Number: AU-PFIZER INC-2021338338

PATIENT
  Sex: Female

DRUGS (3)
  1. SUTENT [Suspect]
     Active Substance: SUNITINIB MALATE
     Dosage: 25 MG
  2. SUTENT [Suspect]
     Active Substance: SUNITINIB MALATE
     Dosage: 37.5 MG
     Dates: start: 20201207
  3. SUTENT [Suspect]
     Active Substance: SUNITINIB MALATE
     Dosage: 25 MG, ALTERNATE DAY

REACTIONS (7)
  - Hypotension [Recovered/Resolved]
  - Sepsis [Recovered/Resolved]
  - Product use issue [Unknown]
  - Anaphylactoid reaction [Recovered/Resolved]
  - Pyrexia [Recovered/Resolved]
  - Malaise [Recovered/Resolved]
  - Off label use [Unknown]
